FAERS Safety Report 7320394-7 (Version None)
Quarter: 2011Q1

REPORT INFORMATION
  Report Type: 
  Country: None (occurrence: None)
  Receive Date: 20110228
  Receipt Date: 20110217
  Transmission Date: 20110831
  Serious: Yes (Death, Hospitalization)
  Sender: FDA-Public Use
  Company Number: A0892671A

PATIENT
  Age: 65 Year
  Sex: Male

DRUGS (2)
  1. AVANDAMET [Suspect]
     Route: 048
     Dates: start: 20051205, end: 20060320
  2. AVANDIA [Suspect]
     Indication: DIABETES MELLITUS
     Route: 048
     Dates: start: 20041223, end: 20091117

REACTIONS (9)
  - RENAL FAILURE CHRONIC [None]
  - CARDIAC MURMUR [None]
  - DYSPNOEA EXERTIONAL [None]
  - MYOCARDIAL ISCHAEMIA [None]
  - DIZZINESS [None]
  - DEATH [None]
  - MYOCARDIAL INFARCTION [None]
  - STENT PLACEMENT [None]
  - LUNG DISORDER [None]
